FAERS Safety Report 20998530 (Version 1)
Quarter: 2022Q2

REPORT INFORMATION
  Report Type: Spontaneous
  Country: US (occurrence: None)
  Receive Date: 20220622
  Receipt Date: 20220622
  Transmission Date: 20220721
  Serious: Yes (Other)
  Sender: FDA-Public Use
  Company Number: None

PATIENT
  Age: 46 Year
  Sex: Female

DRUGS (2)
  1. MEKINIST [Suspect]
     Active Substance: TRAMETINIB DIMETHYL SULFOXIDE
     Indication: Langerhans^ cell histiocytosis
     Dates: start: 20210422
  2. TAFINLAR [Suspect]
     Active Substance: DABRAFENIB MESYLATE
     Indication: Langerhans^ cell histiocytosis
     Dates: start: 20210422

REACTIONS (3)
  - Ocular hyperaemia [None]
  - Photosensitivity reaction [None]
  - Vision blurred [None]

NARRATIVE: CASE EVENT DATE: 20220511
